FAERS Safety Report 6723637-3 (Version None)
Quarter: 2010Q2

REPORT INFORMATION
  Report Type: 
  Country: None (occurrence: None)
  Receive Date: 20100513
  Receipt Date: 20100506
  Transmission Date: 20101027
  Serious: Yes (Other)
  Sender: FDA-Public Use
  Company Number: PHHY2010BE27163

PATIENT
  Sex: Male

DRUGS (5)
  1. RASILEZ [Suspect]
     Indication: HYPERTENSION
     Dosage: UNK
     Dates: start: 20081128
  2. SIMVASTATIN [Concomitant]
     Dosage: UNK
     Dates: end: 20100401
  3. ASAFLOW [Concomitant]
     Dosage: 80 MG, UNK
  4. ATENOLOL [Concomitant]
     Dosage: UNK
  5. ELTHYRONE [Concomitant]
     Dosage: UNK

REACTIONS (5)
  - BLOOD PRESSURE SYSTOLIC DECREASED [None]
  - ERYTHEMA [None]
  - GAMMA-GLUTAMYLTRANSFERASE INCREASED [None]
  - HEPATIC FUNCTION ABNORMAL [None]
  - PURPURA [None]
